FAERS Safety Report 11433461 (Version 1)
Quarter: 2015Q3

REPORT INFORMATION
  Report Type: Spontaneous
  Country: IR (occurrence: None)
  Receive Date: 20150827
  Receipt Date: 20150827
  Transmission Date: 20151125
  Serious: Yes (Hospitalization)
  Sender: FDA-Public Use
  Company Number: NSR_02212_2015

PATIENT
  Age: 6 Year
  Sex: Male

DRUGS (1)
  1. BACLOFEN. [Suspect]
     Active Substance: BACLOFEN
     Indication: DYSURIA
     Dosage: (10 MG, TWO DOSES (1 MG/KG/DAILY))

REACTIONS (11)
  - Ataxia [None]
  - Disorientation [None]
  - Hypotension [None]
  - Intention tremor [None]
  - Mydriasis [None]
  - Initial insomnia [None]
  - Loss of consciousness [None]
  - Hypotonia [None]
  - Dyskinesia [None]
  - Muscle strain [None]
  - Hyperreflexia [None]
